FAERS Safety Report 8246402-7 (Version None)
Quarter: 2012Q1

REPORT INFORMATION
  Report Type: 
  Country: None (occurrence: None)
  Receive Date: 20120330
  Receipt Date: 20120322
  Transmission Date: 20120608
  Serious: Yes (Hospitalization, Other)
  Sender: FDA-Public Use
  Company Number: JP-VERTEX PHARMACEUTICALS INC.-AE-2012-004355

PATIENT
  Age: 64 Year
  Sex: Female

DRUGS (8)
  1. PEGINTERFERON [Concomitant]
     Indication: HEPATITIS C
     Route: 051
     Dates: start: 20120206, end: 20120213
  2. RIBAVIRIN [Concomitant]
     Indication: HEPATITIS C
     Route: 048
     Dates: start: 20120206, end: 20120221
  3. LANSOPRAZOLE [Concomitant]
     Route: 048
     Dates: start: 20120206
  4. ALLEGRA [Concomitant]
     Route: 048
     Dates: start: 20120206
  5. TELAVIC (TELAPREVIR) [Suspect]
     Indication: HEPATITIS C
     Route: 048
     Dates: start: 20120206, end: 20120227
  6. LOXONIN [Concomitant]
     Route: 048
     Dates: start: 20120206
  7. RIBAVIRIN [Concomitant]
     Route: 048
     Dates: start: 20120221, end: 20120227
  8. AMARYL [Concomitant]
     Route: 048
     Dates: start: 20120206

REACTIONS (2)
  - PLATELET COUNT DECREASED [None]
  - PSYCHIATRIC SYMPTOM [None]
